FAERS Safety Report 9748331 (Version 1)
Quarter: 2013Q4

REPORT INFORMATION
  Report Type: Spontaneous
  Country: GB (occurrence: GB)
  Receive Date: 20131212
  Receipt Date: 20131212
  Transmission Date: 20140711
  Serious: Yes (Other)
  Sender: FDA-Public Use
  Company Number: PHFR2013GB006965

PATIENT
  Sex: 0

DRUGS (5)
  1. MYCOPHENOLATE MOFETIL [Suspect]
     Dosage: 1 G, BID
  2. CICLOSPORIN [Suspect]
  3. RIBAVIRIN [Suspect]
     Indication: HEPATITIS C
  4. INCIVO [Suspect]
     Indication: HEPATITIS C
     Route: 048
  5. INTERFERON [Suspect]
     Indication: HEPATITIS C

REACTIONS (3)
  - Blood count abnormal [Unknown]
  - Neutrophil count decreased [Unknown]
  - Off label use [Recovered/Resolved]
